FAERS Safety Report 6264400-X (Version None)
Quarter: 2009Q3

REPORT INFORMATION
  Report Type: 
  Country: None (occurrence: None)
  Receive Date: 20090710
  Receipt Date: 20090703
  Transmission Date: 20100115
  Serious: Yes (Hospitalization)
  Sender: FDA-Public Use
  Company Number: B0582459A

PATIENT
  Age: 82 Year
  Sex: Male

DRUGS (2)
  1. VALTREX [Suspect]
     Indication: HERPES ZOSTER
     Dosage: 1000MG THREE TIMES PER DAY
     Route: 048
     Dates: start: 20090626
  2. VOLTAREN [Suspect]
     Indication: DRUG USE FOR UNKNOWN INDICATION
     Route: 065

REACTIONS (4)
  - AGITATION [None]
  - CONFUSIONAL STATE [None]
  - MUSCULAR WEAKNESS [None]
  - RENAL FAILURE [None]
